FAERS Safety Report 11329606 (Version 1)
Quarter: 2015Q3

REPORT INFORMATION
  Report Type: Spontaneous
  Country: US (occurrence: None)
  Receive Date: 20150730
  Receipt Date: 20150730
  Transmission Date: 20151125
  Serious: Yes (Hospitalization)
  Sender: FDA-Public Use
  Company Number: None

PATIENT
  Age: 66 Year
  Sex: Male

DRUGS (1)
  1. CYTARABINE. [Suspect]
     Active Substance: CYTARABINE
     Indication: NEOPLASM MALIGNANT
     Route: 042
     Dates: start: 20150107, end: 20150109

REACTIONS (3)
  - Tremor [None]
  - Neurotoxicity [None]
  - Coordination abnormal [None]

NARRATIVE: CASE EVENT DATE: 20150110
